FAERS Safety Report 9052987 (Version 3)
Quarter: 2013Q2

REPORT INFORMATION
  Report Type: Spontaneous
  Country: US (occurrence: US)
  Receive Date: 20130208
  Receipt Date: 20130520
  Transmission Date: 20140414
  Serious: Yes (Other)
  Sender: FDA-Public Use
  Company Number: US-BIOGENIDEC-2013BI011665

PATIENT
  Age: 46 Year
  Sex: Female

DRUGS (2)
  1. TYSABRI [Suspect]
     Indication: MULTIPLE SCLEROSIS
     Route: 042
     Dates: start: 20120313, end: 201302
  2. AVONEX [Concomitant]
     Indication: MULTIPLE SCLEROSIS
     Route: 030

REACTIONS (9)
  - Convulsion [Recovered/Resolved]
  - Urticaria [Recovered/Resolved]
  - Blood pressure decreased [Recovered/Resolved]
  - Dehydration [Recovered/Resolved]
  - Feeling hot [Recovered/Resolved]
  - Fear [Not Recovered/Not Resolved]
  - Wound infection [Recovered/Resolved]
  - Loss of consciousness [Unknown]
  - Adverse reaction [Unknown]
